FAERS Safety Report 6567111-6 (Version None)
Quarter: 2010Q1

REPORT INFORMATION
  Report Type: 
  Country: None (occurrence: None)
  Receive Date: 20100127
  Receipt Date: 20100114
  Transmission Date: 20100710
  Serious: Yes (Life-Threatening, Other)
  Sender: FDA-Public Use
  Company Number: 1000005108

PATIENT
  Age: 44 Year
  Sex: Female
  Weight: 50 kg

DRUGS (6)
  1. ESCITALOPRAM [Suspect]
     Dosage: 20 MG (20 MG, 1 IN 1 D), ORAL, 10 MG,1 IN 1D
     Route: 048
     Dates: start: 20080901, end: 20090101
  2. ESCITALOPRAM [Suspect]
     Dosage: 20 MG (20 MG, 1 IN 1 D), ORAL, 10 MG,1 IN 1D
     Route: 048
     Dates: start: 20090101
  3. LAMOTRIGINE [Suspect]
     Dosage: 25 MG (25 MG, 1 IN 1 D), ORAL
     Route: 048
     Dates: start: 20080901
  4. ZYPREXA [Suspect]
     Dosage: 5 MG (5 MG, 1 IN 1 D), ORAL
     Route: 048
  5. VALIUM [Suspect]
     Dosage: 5 MG (5 MG, 1 IN 1 D), ORAL
     Route: 048
  6. PRIADEL (TABLETS) [Suspect]
     Dosage: 800 MG (400 MG, 2 IN 1 D), ORAL
     Route: 048

REACTIONS (2)
  - DRUG INTERACTION [None]
  - LEUKOPENIA [None]
